FAERS Safety Report 5700214-4 (Version None)
Quarter: 2008Q2

REPORT INFORMATION
  Report Type: 
  Country: None (occurrence: None)
  Receive Date: 20080409
  Receipt Date: 20080327
  Transmission Date: 20081010
  Serious: No
  Sender: FDA-Public Use
  Company Number: US-JNJFOC-20080306946

PATIENT
  Age: 80 Year
  Sex: Female

DRUGS (1)
  1. INVEGA [Suspect]
     Indication: HALLUCINATION
     Route: 048

REACTIONS (1)
  - SOMNOLENCE [None]
